FAERS Safety Report 21328718 (Version 1)
Quarter: 2022Q3

REPORT INFORMATION
  Report Type: Spontaneous
  Country: US (occurrence: None)
  Receive Date: 20220913
  Receipt Date: 20220913
  Transmission Date: 20221026
  Serious: No
  Sender: FDA-Public Use
  Company Number: 2022A306648

PATIENT
  Sex: Female
  Weight: 63.5 kg

DRUGS (1)
  1. PULMICORT FLEXHALER [Suspect]
     Active Substance: BUDESONIDE
     Indication: Asthma
     Route: 055

REACTIONS (5)
  - Dyspnoea [Unknown]
  - Dysphonia [Unknown]
  - Drug ineffective [Unknown]
  - Device malfunction [Unknown]
  - Product use issue [Unknown]
